FAERS Safety Report 15941289 (Version 3)
Quarter: 2019Q2

REPORT INFORMATION
  Report Type: Spontaneous
  Country: US (occurrence: US)
  Receive Date: 20190208
  Receipt Date: 20190411
  Transmission Date: 20190711
  Serious: Yes (Other)
  Sender: FDA-Public Use
  Company Number: US-ASTRAZENECA-2018SF65109

PATIENT
  Age: 16530 Day
  Sex: Female
  Weight: 74.8 kg

DRUGS (9)
  1. PRILOSEC [Suspect]
     Active Substance: OMEPRAZOLE MAGNESIUM
     Route: 048
     Dates: start: 20090101
  2. LISINOPRIL. [Concomitant]
     Active Substance: LISINOPRIL
  3. AMARYL [Concomitant]
     Active Substance: GLIMEPIRIDE
  4. MULTIVITAMINS [Concomitant]
     Active Substance: VITAMINS
  5. CRESTOR [Concomitant]
     Active Substance: ROSUVASTATIN CALCIUM
  6. PRILOSEC [Suspect]
     Active Substance: OMEPRAZOLE MAGNESIUM
     Route: 048
  7. LEXAPRO [Concomitant]
     Active Substance: ESCITALOPRAM OXALATE
  8. ARANESP [Concomitant]
     Active Substance: DARBEPOETIN ALFA
  9. ECOTRIN [Concomitant]
     Active Substance: ASPIRIN

REACTIONS (6)
  - Renal failure [Unknown]
  - Renal injury [Unknown]
  - Nephrogenic anaemia [Unknown]
  - Renal impairment [Unknown]
  - Rebound acid hypersecretion [Unknown]
  - Chronic kidney disease [Unknown]

NARRATIVE: CASE EVENT DATE: 20101029
